FAERS Safety Report 6765213-2 (Version None)
Quarter: 2010Q2

REPORT INFORMATION
  Report Type: 
  Country: None (occurrence: None)
  Receive Date: 20100610
  Receipt Date: 20100610
  Transmission Date: 20101027
  Serious: No
  Sender: FDA-Public Use
  Company Number: None

PATIENT
  Age: 68 Year
  Sex: Female
  Weight: 68.4932 kg

DRUGS (1)
  1. AMITRIPTYLINE HCL [Suspect]
     Indication: NEURALGIA
     Dosage: 10-20 MG DAILY PO
     Route: 048
     Dates: start: 20100504, end: 20100510

REACTIONS (4)
  - ABDOMINAL PAIN [None]
  - DYSSTASIA [None]
  - GAIT DISTURBANCE [None]
  - GROIN PAIN [None]
